FAERS Safety Report 19921174 (Version 1)
Quarter: 2021Q4

REPORT INFORMATION
  Report Type: Spontaneous
  Country: CN (occurrence: CN)
  Receive Date: 20211006
  Receipt Date: 20211006
  Transmission Date: 20220303
  Serious: Yes (Other)
  Sender: FDA-Public Use
  Company Number: CN-BLUEPRINT MEDICINES CORPORATION-SO-CN-2021-001762

PATIENT

DRUGS (3)
  1. GAVRETO [Suspect]
     Active Substance: PRALSETINIB
     Indication: Lung adenocarcinoma
     Route: 048
     Dates: start: 202109
  2. GAVRETO [Suspect]
     Active Substance: PRALSETINIB
     Indication: RET gene mutation
  3. GAVRETO [Suspect]
     Active Substance: PRALSETINIB
     Indication: TP53 gene mutation

REACTIONS (1)
  - Hyperpyrexia [Unknown]
